FAERS Safety Report 8318682-0 (Version None)
Quarter: 2012Q2

REPORT INFORMATION
  Report Type: 
  Country: None (occurrence: None)
  Receive Date: 20120427
  Receipt Date: 20120419
  Transmission Date: 20120825
  Serious: Yes (Hospitalization, Other)
  Sender: FDA-Public Use
  Company Number: US-ABBOTT-12P-163-0927283-00

PATIENT
  Sex: Male
  Weight: 72.64 kg

DRUGS (3)
  1. SIMCOR [Suspect]
     Indication: PRODUCT USED FOR UNKNOWN INDICATION
     Dosage: 500/40MG
     Dates: start: 20110601
  2. TYLENOL [Concomitant]
     Indication: HEADACHE
  3. PRADAXA [Concomitant]
     Indication: ANTICOAGULANT THERAPY

REACTIONS (6)
  - LYMPHOMA [None]
  - DIVERTICULITIS [None]
  - WHITE BLOOD CELL COUNT ABNORMAL [None]
  - ATRIAL FIBRILLATION [None]
  - DIVERTICULAR PERFORATION [None]
  - BLOOD GLUCOSE INCREASED [None]
